FAERS Safety Report 12008744 (Version 1)
Quarter: 2016Q1

REPORT INFORMATION
  Report Type: Spontaneous
  Country: US (occurrence: None)
  Receive Date: 20160203
  Receipt Date: 20160203
  Transmission Date: 20160526
  Serious: Yes (Other)
  Sender: FDA-Public Use
  Company Number: None

PATIENT
  Age: 75 Year
  Sex: Female
  Weight: 71.22 kg

DRUGS (20)
  1. D3-1000IU [Concomitant]
  2. MAG 64 [Concomitant]
  3. CARISOPRODOL. [Concomitant]
     Active Substance: CARISOPRODOL
  4. B-121000MCG [Concomitant]
  5. CYMBALTA [Suspect]
     Active Substance: DULOXETINE HYDROCHLORIDE
     Indication: MYALGIA
     Dosage: 1 60MG. + 1 30MG. DAILY
     Route: 048
     Dates: start: 20141101, end: 20160202
  6. AMLODIPINE [Concomitant]
     Active Substance: AMLODIPINE BESYLATE
  7. CELECOXIB. [Concomitant]
     Active Substance: CELECOXIB
  8. DULOXETINE. [Concomitant]
     Active Substance: DULOXETINE
  9. TRAMADOL. [Concomitant]
     Active Substance: TRAMADOL
  10. BISOPROLOL [Concomitant]
     Active Substance: BISOPROLOL
  11. OMEPRAZOLE. [Concomitant]
     Active Substance: OMEPRAZOLE
  12. FLAXSEED [Concomitant]
     Active Substance: FLAX SEED
  13. LUTEIN [Concomitant]
     Active Substance: LUTEIN
  14. C-1000MG [Concomitant]
  15. FISH OIL [Concomitant]
     Active Substance: FISH OIL
  16. PROBIOTIC [Concomitant]
     Active Substance: PROBIOTICS NOS
  17. ASPIRIN 81MG [Concomitant]
     Active Substance: ASPIRIN
  18. CYMBALTA [Suspect]
     Active Substance: DULOXETINE HYDROCHLORIDE
     Indication: ARTHRITIS
     Dosage: 1 60MG. + 1 30MG. DAILY
     Route: 048
     Dates: start: 20141101, end: 20160202
  19. BIOTIN [Concomitant]
     Active Substance: BIOTIN
  20. FOLIC ACID. [Concomitant]
     Active Substance: FOLIC ACID

REACTIONS (10)
  - Nightmare [None]
  - Anxiety [None]
  - Palpitations [None]
  - Drug withdrawal syndrome [None]
  - Visual impairment [None]
  - Nausea [None]
  - Memory impairment [None]
  - Sleep disorder [None]
  - Irritability [None]
  - Anger [None]

NARRATIVE: CASE EVENT DATE: 20160202
